FAERS Safety Report 7383679 (Version 2)
Quarter: 2013Q1

REPORT INFORMATION
  Report Type: Spontaneous
  Country: IT (occurrence: None)
  Receive Date: 20100504
  Receipt Date: 20121115
  Transmission Date: 20140127
  Serious: Yes (Other)
  Sender: FDA-Public Use
  Company Number: MPS1-1000323

PATIENT
  Age: 26 Year
  Sex: Female

DRUGS (1)
  1. ALDURAZYME [Suspect]
     Indication: MUCOPOLYSACCHARIDOSIS I
     Route: 042
     Dates: start: 2008

REACTIONS (5)
  - Abortion spontaneous [None]
  - Premature rupture of membranes [None]
  - Maternal exposure during pregnancy [None]
  - Product adhesion issue [None]
  - Pregnancy [None]
